FAERS Safety Report 6122948-2 (Version None)
Quarter: 2009Q1

REPORT INFORMATION
  Report Type: 
  Country: None (occurrence: None)
  Receive Date: 20090318
  Receipt Date: 20080415
  Transmission Date: 20090719
  Serious: No
  Sender: FDA-Public Use
  Company Number: US-AMGEN-KDL270010

PATIENT
  Sex: Female
  Weight: 61.7 kg

DRUGS (1)
  1. NEULASTA [Suspect]
     Indication: BREAST CANCER
     Route: 058
     Dates: start: 20080205

REACTIONS (2)
  - BONE PAIN [None]
  - WHITE BLOOD CELL COUNT INCREASED [None]
